FAERS Safety Report 5299915-4 (Version None)
Quarter: 2007Q2

REPORT INFORMATION
  Report Type: 
  Country: None (occurrence: None)
  Receive Date: 20070410
  Receipt Date: 20070330
  Transmission Date: 20071010
  Serious: Yes (Life-Threatening)
  Sender: FDA-Public Use
  Company Number: B0460404A

PATIENT
  Age: 77 Year
  Sex: Female

DRUGS (11)
  1. AMOXIL [Suspect]
     Indication: HELICOBACTER INFECTION
     Dosage: 750 MG TWICE PER DAY ORAL
     Route: 048
     Dates: start: 20070214, end: 20070215
  2. OMEPRAZOLE [Suspect]
     Indication: HELICOBACTER INFECTION
     Dosage: ORAL
     Route: 048
     Dates: end: 20070215
  3. CLARITHROMYCIN [Suspect]
     Indication: HELICOBACTER INFECTION
     Dosage: 200 MG TWICE PER DAY ORAL
     Route: 048
     Dates: start: 20070214, end: 20070215
  4. UROSODEOXYCHOLIC ACID [Concomitant]
  5. GLIMEPIRIDE [Concomitant]
  6. VOGLIBOSE [Concomitant]
  7. IFENPRODIL TARTRATE [Concomitant]
  8. AMLODIPINE [Concomitant]
  9. PURSENNID [Concomitant]
  10. ETIZOLAM [Concomitant]
  11. ASPIRIN [Concomitant]

REACTIONS (5)
  - DRUG LEVEL DECREASED [None]
  - HAEMOPTYSIS [None]
  - HAEMORRHAGE [None]
  - PETECHIAE [None]
  - THROMBOCYTOPENIA [None]
